FAERS Safety Report 15616270 (Version 1)
Quarter: 2018Q4

REPORT INFORMATION
  Report Type: Spontaneous
  Country: US (occurrence: US)
  Receive Date: 20181108
  Receipt Date: 20181108
  Transmission Date: 20190205
  Serious: No
  Sender: FDA-Public Use
  Company Number: None

PATIENT
  Age: 58 Year
  Sex: Female

DRUGS (1)
  1. COPAXONE [Suspect]
     Active Substance: GLATIRAMER ACETATE
     Dates: start: 20171016

REACTIONS (4)
  - Gastroenteritis viral [None]
  - Diarrhoea [None]
  - Nasopharyngitis [None]
  - Pain in extremity [None]

NARRATIVE: CASE EVENT DATE: 20181107
